FAERS Safety Report 25721279 (Version 1)
Quarter: 2025Q3

REPORT INFORMATION
  Report Type: Spontaneous
  Country: AU (occurrence: AU)
  Receive Date: 20250825
  Receipt Date: 20250825
  Transmission Date: 20251021
  Serious: Yes (Hospitalization, Other)
  Sender: MYLAN
  Company Number: AU-MYLANLABS-2025M1070815

PATIENT
  Sex: Male

DRUGS (1)
  1. CLOZARIL [Suspect]
     Active Substance: CLOZAPINE
     Indication: Schizophrenia
     Dates: start: 20110930, end: 20250813

REACTIONS (5)
  - Mental impairment [Unknown]
  - Influenza [Unknown]
  - Postoperative wound infection [Unknown]
  - Tachycardia [Unknown]
  - Pyrexia [Unknown]
